FAERS Safety Report 15656338 (Version 1)
Quarter: 2018Q4

REPORT INFORMATION
  Report Type: Report from Study
  Country: DE (occurrence: DE)
  Receive Date: 20181126
  Receipt Date: 20181126
  Transmission Date: 20190205
  Serious: Yes (Hospitalization)
  Sender: FDA-Public Use
  Company Number: DE-JNJFOC-20181118189

PATIENT
  Age: 22 Year
  Sex: Female
  Weight: 71 kg

DRUGS (3)
  1. STELARA [Suspect]
     Active Substance: USTEKINUMAB
     Indication: CROHN^S DISEASE
     Route: 058
     Dates: start: 20180615
  2. STELARA [Suspect]
     Active Substance: USTEKINUMAB
     Indication: CROHN^S DISEASE
     Route: 058
     Dates: start: 20180727
  3. CEFUROXIME. [Concomitant]
     Active Substance: CEFUROXIME
     Indication: CONTRACEPTION
     Route: 065

REACTIONS (4)
  - Clostridium difficile colitis [Recovered/Resolved]
  - Spinal compression fracture [Unknown]
  - Duodenitis [Unknown]
  - Crohn^s disease [Unknown]

NARRATIVE: CASE EVENT DATE: 2018
